FAERS Safety Report 6022466-6 (Version None)
Quarter: 2008Q4

REPORT INFORMATION
  Report Type: 
  Country: None (occurrence: None)
  Receive Date: 20081223
  Receipt Date: 20081211
  Transmission Date: 20090506
  Serious: Yes (Other)
  Sender: FDA-Public Use
  Company Number: ADR3012008

PATIENT
  Sex: Female

DRUGS (1)
  1. ALENDRONATE TABLETS (UNKNOWN MANUFACTURER + STRENGTH) [Suspect]
     Dates: start: 20060101

REACTIONS (9)
  - ABNORMAL BEHAVIOUR [None]
  - CONTUSION [None]
  - DRUG DISPENSING ERROR [None]
  - DYSKINESIA [None]
  - DYSPHAGIA [None]
  - FATIGUE [None]
  - MUSCLE SPASMS [None]
  - TONGUE BITING [None]
  - TRISMUS [None]
